FAERS Safety Report 15296166 (Version 2)
Quarter: 2019Q2

REPORT INFORMATION
  Report Type: Report from Study
  Country: JP (occurrence: JP)
  Receive Date: 20180820
  Receipt Date: 20190625
  Transmission Date: 20190711
  Serious: Yes (Death, Hospitalization)
  Sender: FDA-Public Use
  Company Number: JP-ACTELION-A-CH2018-172193

PATIENT
  Age: 74 Year
  Sex: Male
  Weight: 72.8 kg

DRUGS (33)
  1. SELEXIPAG [Suspect]
     Active Substance: SELEXIPAG
     Dosage: 200 ?G, BID
     Route: 048
     Dates: start: 20180317, end: 20180329
  2. JARDIANCE [Concomitant]
     Active Substance: EMPAGLIFLOZIN
     Indication: DIABETES MELLITUS
     Dosage: 10 MG, QD
     Dates: start: 20180413
  3. MUCOSOLVAN [Concomitant]
     Active Substance: AMBROXOL HYDROCHLORIDE
     Indication: CHRONIC OBSTRUCTIVE PULMONARY DISEASE
     Dosage: 45 MG, QD
     Dates: start: 20150313
  4. SELEXIPAG [Suspect]
     Active Substance: SELEXIPAG
     Dosage: 2600 ?G, QD
     Route: 048
     Dates: start: 20180608, end: 20180608
  5. LYRICA [Concomitant]
     Active Substance: PREGABALIN
     Indication: SPINAL COMPRESSION FRACTURE
     Dosage: 150 MG, QD
     Dates: start: 20180610
  6. SELEXIPAG [Suspect]
     Active Substance: SELEXIPAG
     Dosage: 200 ?G, OD
     Route: 048
     Dates: start: 20180316, end: 20180316
  7. SELEXIPAG [Suspect]
     Active Substance: SELEXIPAG
     Dosage: 600 ?G, QD
     Route: 048
     Dates: start: 20180330, end: 20180330
  8. NIFEDIPINE. [Concomitant]
     Active Substance: NIFEDIPINE
     Indication: ANGINA PECTORIS
     Dosage: 20 MG, QD
     Dates: start: 20180627
  9. LYRICA [Concomitant]
     Active Substance: PREGABALIN
     Dosage: 76 MG, QD
     Dates: start: 20180610
  10. SELEXIPAG [Suspect]
     Active Substance: SELEXIPAG
     Dosage: 1000 ?G, BID
     Route: 048
     Dates: start: 20180512, end: 20180524
  11. BISONO [Concomitant]
     Active Substance: BISOPROLOL
     Indication: HYPERTENSION
     Dosage: 4 MG, QD
     Dates: start: 20161222
  12. OXIS [Concomitant]
     Active Substance: FORMOTEROL FUMARATE
     Indication: CHRONIC OBSTRUCTIVE PULMONARY DISEASE
     Dosage: UNK UNK, QD
     Dates: start: 20150313
  13. SELEXIPAG [Suspect]
     Active Substance: SELEXIPAG
     Dosage: 600 ?G, BID
     Route: 048
     Dates: start: 20180414, end: 20180419
  14. SELEXIPAG [Suspect]
     Active Substance: SELEXIPAG
     Dosage: 1800 ?G, QD
     Route: 048
     Dates: start: 20180511, end: 20180511
  15. SELEXIPAG [Suspect]
     Active Substance: SELEXIPAG
     Dosage: 3000 ?G, QD
     Route: 048
     Dates: start: 20180622, end: 20180622
  16. SUINY [Concomitant]
     Active Substance: ANAGLIPTIN
     Indication: DIABETES MELLITUS
     Dosage: 100 MG, QD
     Dates: start: 20161005
  17. SHAKUYAKUKANZOTO [Concomitant]
     Active Substance: HERBALS
     Indication: BACK PAIN
     Dosage: UNK
     Dates: start: 20140912
  18. MICARDIS [Concomitant]
     Active Substance: TELMISARTAN
     Indication: HYPERTENSION
     Dosage: 40 MG, QD
     Dates: start: 20131224
  19. LOXOPROFEN NA [Concomitant]
     Active Substance: LOXOPROFEN SODIUM
     Indication: ANALGESIC THERAPY
     Dosage: 180 MG, QD
     Dates: start: 20180507
  20. SELEXIPAG [Suspect]
     Active Substance: SELEXIPAG
     Dosage: 1400 ?G, QD
     Route: 048
     Dates: start: 20180420, end: 20180420
  21. SELEXIPAG [Suspect]
     Active Substance: SELEXIPAG
     Dosage: 2200 ?G, QD
     Route: 048
     Dates: start: 20180525, end: 20180525
  22. CRESTOR [Concomitant]
     Active Substance: ROSUVASTATIN CALCIUM
     Indication: HYPERCHOLESTEROLAEMIA
     Dosage: 2.5 MG, QD
     Dates: start: 20140808
  23. ADALAT [Concomitant]
     Active Substance: NIFEDIPINE
     Indication: HYPERTENSION
     Dosage: 20 MG, QD
     Dates: start: 20140221
  24. ATELEC [Concomitant]
     Active Substance: CILNIDIPINE
     Indication: HYPERTENSION
     Dosage: 20 MG, QD
     Dates: start: 20131225
  25. SELEXIPAG [Suspect]
     Active Substance: SELEXIPAG
     Indication: PERIPHERAL ARTERIAL OCCLUSIVE DISEASE
     Dosage: 800 ?G, BID
     Route: 048
     Dates: start: 20180421, end: 20180510
  26. SELEXIPAG [Suspect]
     Active Substance: SELEXIPAG
     Dosage: 1000 ?G, QD
     Route: 048
     Dates: start: 20180413, end: 20180413
  27. REBAMIPIDE [Concomitant]
     Active Substance: REBAMIPIDE
     Indication: PROPHYLAXIS AGAINST GASTROINTESTINAL ULCER
     Dosage: 300 MG, QD
     Dates: start: 20180507
  28. ONETRAM [Concomitant]
     Active Substance: TRAMADOL HYDROCHLORIDE
     Dosage: 75 MG, QD
  29. SELEXIPAG [Suspect]
     Active Substance: SELEXIPAG
     Dosage: 400 ?G, BID
     Route: 048
     Dates: start: 20180331, end: 20180412
  30. SELEXIPAG [Suspect]
     Active Substance: SELEXIPAG
     Dosage: 1200 ?G, BID
     Route: 048
     Dates: start: 20180526, end: 20180607
  31. SELEXIPAG [Suspect]
     Active Substance: SELEXIPAG
     Dosage: 1400 ?G, BID
     Route: 048
     Dates: start: 20180609, end: 20180621
  32. SELEXIPAG [Suspect]
     Active Substance: SELEXIPAG
     Dosage: 1600 ?G, BID
     Route: 048
     Dates: start: 20180623, end: 20180713
  33. CILNIDIPINE [Concomitant]
     Active Substance: CILNIDIPINE
     Indication: ANALGESIC THERAPY
     Dosage: 20 MG, QD
     Dates: start: 20180627

REACTIONS (4)
  - Pneumonia [Fatal]
  - Spinal compression fracture [Recovered/Resolved]
  - Joint injury [Unknown]
  - Fall [Unknown]

NARRATIVE: CASE EVENT DATE: 20180503
